FAERS Safety Report 6188833-5 (Version None)
Quarter: 2009Q2

REPORT INFORMATION
  Report Type: 
  Country: None (occurrence: None)
  Receive Date: 20090511
  Receipt Date: 20090511
  Transmission Date: 20091009
  Serious: No
  Sender: FDA-Public Use
  Company Number: None

PATIENT
  Age: 55 Year
  Sex: Male
  Weight: 78.0187 kg

DRUGS (2)
  1. LIPITOR [Suspect]
     Indication: BLOOD CHOLESTEROL ABNORMAL
     Dosage: ONCE DAILY OTHER
     Route: 050
     Dates: start: 20090507, end: 20090510
  2. LIPITOR [Suspect]
     Indication: BLOOD TRIGLYCERIDES INCREASED
     Dosage: ONCE DAILY OTHER
     Route: 050
     Dates: start: 20090507, end: 20090510

REACTIONS (8)
  - ASTHENIA [None]
  - DIZZINESS [None]
  - EYE PAIN [None]
  - HEADACHE [None]
  - MYALGIA [None]
  - NAUSEA [None]
  - OCULAR ICTERUS [None]
  - PYREXIA [None]
